FAERS Safety Report 11596257 (Version 4)
Quarter: 2015Q4

REPORT INFORMATION
  Report Type: Report from Study
  Country: US (occurrence: US)
  Receive Date: 20151006
  Receipt Date: 20151203
  Transmission Date: 20160304
  Serious: Yes (Hospitalization, Other)
  Sender: FDA-Public Use
  Company Number: US-ROCHE-ITM201505IM016406

PATIENT
  Sex: Female
  Weight: 106.24 kg

DRUGS (1)
  1. ESBRIET [Suspect]
     Active Substance: PIRFENIDONE
     Indication: IDIOPATHIC PULMONARY FIBROSIS
     Dosage: TOTAL 2403 MG DAILY, 3 CAPS PO TID
     Route: 048
     Dates: start: 20150521

REACTIONS (14)
  - Nausea [Unknown]
  - Dyspepsia [Unknown]
  - Joint injury [Unknown]
  - Gastrointestinal infection [Unknown]
  - Diarrhoea [Unknown]
  - Lung infection [Unknown]
  - Pulmonary oedema [Unknown]
  - Hyperhidrosis [Unknown]
  - Vomiting [Unknown]
  - Pain in extremity [Unknown]
  - Abdominal pain upper [Unknown]
  - Insomnia [Unknown]
  - Fatigue [Unknown]
  - Asthenia [Unknown]
